FAERS Safety Report 6774176-5 (Version None)
Quarter: 2010Q2

REPORT INFORMATION
  Report Type: 
  Country: None (occurrence: None)
  Receive Date: 20100616
  Receipt Date: 20100616
  Transmission Date: 20101027
  Serious: Yes (Life-Threatening)
  Sender: FDA-Public Use
  Company Number: None

PATIENT
  Sex: Male
  Weight: 68.0396 kg

DRUGS (2)
  1. NAMENDA [Suspect]
     Indication: DEMENTIA
     Dosage: 1 TABLET DAILY
     Dates: start: 20100327
  2. NAMENDA [Suspect]
     Indication: DEMENTIA ALZHEIMER'S TYPE
     Dosage: 1 TABLET DAILY
     Dates: start: 20100327

REACTIONS (4)
  - DIARRHOEA [None]
  - DYSKINESIA [None]
  - HEADACHE [None]
  - NERVOUSNESS [None]
